FAERS Safety Report 5849670-1 (Version None)
Quarter: 2008Q3

REPORT INFORMATION
  Report Type: 
  Country: None (occurrence: None)
  Receive Date: 20080818
  Receipt Date: 20080818
  Transmission Date: 20090109
  Serious: Yes (Life-Threatening)
  Sender: FDA-Public Use
  Company Number: None

PATIENT
  Sex: Male
  Weight: 44.9061 kg

DRUGS (1)
  1. BACTRIM [Suspect]
     Indication: SINUSITIS
     Dosage: ONE TWICE DAILY PO
     Route: 048
     Dates: start: 20080801, end: 20080811

REACTIONS (7)
  - AURICULAR SWELLING [None]
  - BURNING SENSATION [None]
  - ERYTHEMA [None]
  - NAUSEA [None]
  - PRURITUS [None]
  - RASH GENERALISED [None]
  - VOMITING [None]
